FAERS Safety Report 7178161-3 (Version None)
Quarter: 2010Q4

REPORT INFORMATION
  Report Type: 
  Country: None (occurrence: None)
  Receive Date: 20101220
  Receipt Date: 20101209
  Transmission Date: 20110411
  Serious: Yes (Hospitalization, Other)
  Sender: FDA-Public Use
  Company Number: B0689894A

PATIENT
  Sex: Female

DRUGS (4)
  1. HYDROXYZINE HCL [Suspect]
     Dates: start: 20101008, end: 20101009
  2. EFFERALGAN [Suspect]
     Dates: start: 20101007, end: 20101011
  3. AUGMENTIN '125' [Suspect]
     Dates: start: 20101007, end: 20101011
  4. BLINDED TRIAL MEDICATION [Suspect]
     Dates: start: 20101007, end: 20101011

REACTIONS (3)
  - ALANINE AMINOTRANSFERASE INCREASED [None]
  - ASPARTATE AMINOTRANSFERASE INCREASED [None]
  - LUNG NEOPLASM MALIGNANT [None]
